FAERS Safety Report 10091005 (Version 1)
Quarter: 2014Q2

REPORT INFORMATION
  Report Type: Spontaneous
  Country: GB (occurrence: GB)
  Receive Date: 20140421
  Receipt Date: 20140421
  Transmission Date: 20141212
  Serious: Yes (Other)
  Sender: FDA-Public Use
  Company Number: PHHY2014GB046076

PATIENT
  Age: 67 Year
  Sex: Female
  Weight: 118 kg

DRUGS (8)
  1. PARACETAMOL [Suspect]
     Dates: start: 20140402
  2. CODEINE PHOSPHATE [Concomitant]
     Dosage: UNK UKN, UNK
     Dates: start: 20140305, end: 20140317
  3. FUROSEMIDE [Concomitant]
     Dosage: UNK UKN, UNK
     Dates: start: 20131118, end: 20140306
  4. LISINOPRIL [Concomitant]
     Dosage: UNK UKN, UNK
     Dates: start: 20131118, end: 20140306
  5. METFORMIN [Concomitant]
     Dosage: UNK UKN, UNK
     Dates: start: 20131118, end: 20140306
  6. OMEPRAZOLE [Concomitant]
     Dosage: UNK UKN, UNK
     Dates: start: 20131118, end: 20140306
  7. SIMVASTATIN [Concomitant]
     Dosage: UNK UKN, UNK
     Dates: start: 20131118, end: 20140306
  8. WARFARIN SODIUM [Concomitant]
     Dosage: UNK UKN, UNK
     Dates: start: 20131210

REACTIONS (1)
  - Tremor [Unknown]
